FAERS Safety Report 7244740-8 (Version None)
Quarter: 2011Q1

REPORT INFORMATION
  Report Type: 
  Country: None (occurrence: None)
  Receive Date: 20110126
  Receipt Date: 20110113
  Transmission Date: 20110831
  Serious: No
  Sender: FDA-Public Use
  Company Number: US-BIOGENIDEC-2011BI000830

PATIENT
  Age: 45 Year
  Sex: Male

DRUGS (1)
  1. TYSABRI [Suspect]
     Indication: MULTIPLE SCLEROSIS
     Route: 042
     Dates: start: 20100618

REACTIONS (12)
  - CONTUSION [None]
  - ABDOMINAL PAIN UPPER [None]
  - JOINT SPRAIN [None]
  - FALL [None]
  - GAIT DISTURBANCE [None]
  - MUSCLE SPASMS [None]
  - THROAT IRRITATION [None]
  - DIARRHOEA [None]
  - COUGH [None]
  - DIZZINESS [None]
  - DECREASED APPETITE [None]
  - LOSS OF CONSCIOUSNESS [None]
